FAERS Safety Report 4544243-5 (Version None)
Quarter: 2004Q4

REPORT INFORMATION
  Report Type: 
  Country: None (occurrence: None)
  Receive Date: 20041230
  Receipt Date: 20041228
  Transmission Date: 20050328
  Serious: Yes (Death)
  Sender: FDA-Public Use
  Company Number: TCI2004A04763

PATIENT
  Age: 83 Year
  Sex: Male

DRUGS (10)
  1. ACTOS [Suspect]
     Indication: DIABETES MELLITUS NON-INSULIN-DEPENDENT
     Dosage: 15 MG (15 MG, 1 IN 1 D) PER ORAL
     Route: 048
     Dates: start: 20020627, end: 20030508
  2. BLOPRESS TABLETS 8 (CANDESARTAN CILEXETIL) [Concomitant]
  3. ATENOLOL [Concomitant]
  4. ACETYLSALICYLIC ACID SRT [Concomitant]
  5. TAMSULOSIN HYDROCHLORIDE [Concomitant]
  6. GLIBENCLAMIDE [Concomitant]
  7. CHLORMADINONE ACETATE TAB [Concomitant]
  8. ISOSORBIDE MONONITRATE [Concomitant]
  9. SENNOSIDE A+B [Concomitant]
  10. LUPRAC (TRASEMIDE) [Concomitant]

REACTIONS (6)
  - ACUTE MYOCARDIAL INFARCTION [None]
  - HEPATIC FUNCTION ABNORMAL [None]
  - HYPERKALAEMIA [None]
  - JAUNDICE [None]
  - RENAL FAILURE [None]
  - SHOCK [None]
